FAERS Safety Report 14019246 (Version 1)
Quarter: 2017Q3

REPORT INFORMATION
  Report Type: Spontaneous
  Country: US (occurrence: US)
  Receive Date: 20170928
  Receipt Date: 20170928
  Transmission Date: 20171128
  Serious: No
  Sender: FDA-Public Use
  Company Number: US-BION-005802

PATIENT
  Age: 37 Year
  Sex: Female
  Weight: 59.87 kg

DRUGS (1)
  1. IMODIUM A-D [Suspect]
     Active Substance: LOPERAMIDE HYDROCHLORIDE
     Indication: DIARRHOEA
     Dosage: TOOK 2 AT 1PM YESTERDAY; 1 BEFORE BED LAST NIGHT; AND 1 THIS MORNING-AFTER BREAKFAST AS DIRECTED
     Route: 048
     Dates: start: 20161206, end: 20161207

REACTIONS (1)
  - Drug ineffective [Not Recovered/Not Resolved]
